FAERS Safety Report 4282013-6 (Version None)
Quarter: 2004Q1

REPORT INFORMATION
  Report Type: 
  Country: None (occurrence: None)
  Receive Date: 20040130
  Receipt Date: 20040120
  Transmission Date: 20041129
  Serious: Yes (Other)
  Sender: FDA-Public Use
  Company Number: GB-BRISTOL-MYERS SQUIBB COMPANY-12482659

PATIENT
  Age: 71 Year
  Sex: Female

DRUGS (2)
  1. CARBOPLATIN [Suspect]
  2. TOPOTECAN [Suspect]

REACTIONS (5)
  - ANAEMIA [None]
  - CHILLS [None]
  - DYSPNOEA [None]
  - LETHARGY [None]
  - NEUTROPENIA [None]
